FAERS Safety Report 5166925-7 (Version None)
Quarter: 2006Q4

REPORT INFORMATION
  Report Type: 
  Country: None (occurrence: None)
  Receive Date: 20061207
  Receipt Date: 20061101
  Transmission Date: 20070319
  Serious: Yes (Life-Threatening, Other)
  Sender: FDA-Public Use
  Company Number: GB-ELI_LILLY_AND_COMPANY-GB200611000260

PATIENT
  Age: 35 Year
  Sex: Female
  Weight: 65 kg

DRUGS (2)
  1. NORADRENALINE [Concomitant]
     Indication: HYPOTENSION
     Dates: start: 20061029
  2. XIGRIS [Suspect]
     Dosage: UNK, UNK
     Route: 042
     Dates: start: 20061031, end: 20061101

REACTIONS (1)
  - ACUTE MYOCARDIAL INFARCTION [None]
